FAERS Safety Report 5725076-0 (Version None)
Quarter: 2008Q2

REPORT INFORMATION
  Report Type: 
  Country: None (occurrence: None)
  Receive Date: 20080501
  Receipt Date: 20080418
  Transmission Date: 20081010
  Serious: Yes (Hospitalization)
  Sender: FDA-Public Use
  Company Number: US-AMGEN-QUU275214

PATIENT
  Age: 37 Year
  Sex: Female

DRUGS (3)
  1. KEPIVANCE [Suspect]
     Indication: MUCOSAL INFLAMMATION
     Route: 065
     Dates: start: 20080415
  2. CYTOXAN [Concomitant]
     Route: 065
  3. UNSPECIFIED RADIATION THERAPY [Concomitant]
     Route: 065

REACTIONS (3)
  - MOUTH HAEMORRHAGE [None]
  - OROPHARYNGEAL BLISTERING [None]
  - PLATELET COUNT DECREASED [None]
